FAERS Safety Report 7039900-5 (Version None)
Quarter: 2010Q4

REPORT INFORMATION
  Report Type: 
  Country: None (occurrence: None)
  Receive Date: 20101012
  Receipt Date: 20101001
  Transmission Date: 20110411
  Serious: Yes (Hospitalization)
  Sender: FDA-Public Use
  Company Number: IT-PFIZER INC-2006106224

PATIENT
  Age: 69 Year
  Sex: Male
  Weight: 70 kg

DRUGS (19)
  1. SUNITINIB MALATE [Suspect]
     Indication: METASTATIC RENAL CELL CARCINOMA
     Dosage: 37.5 MG, 1X/DAY
     Route: 048
     Dates: start: 20060802, end: 20060827
  2. TAMSULOSIN HYDROCHLORIDE [Concomitant]
     Dosage: UNK
     Route: 048
  3. SERETIDE MITE [Concomitant]
     Dosage: UNK
     Route: 055
  4. LERCANIDIPINE HYDROCHLORIDE [Concomitant]
     Dosage: UNK
     Route: 048
  5. LATANOPROST [Concomitant]
     Dosage: UNK
     Route: 050
  6. BREVA [Concomitant]
     Dosage: UNK
     Route: 047
  7. BECLOMETASONE DIPROPIONATE [Concomitant]
     Dosage: UNK
     Route: 047
  8. METOCLOPRAMIDE [Concomitant]
     Dosage: UNK
     Route: 048
  9. EPOETIN ALFA [Concomitant]
     Dosage: UNK
     Route: 058
     Dates: start: 20060705
  10. FERROUS SULFATE [Concomitant]
     Dosage: UNK
     Route: 048
     Dates: start: 20060705
  11. GENERAL NUTRIENTS/VITAMINS NOS [Concomitant]
     Dosage: UNK
     Route: 048
     Dates: start: 20060702, end: 20060828
  12. ACECLOFENAC [Concomitant]
     Dosage: UNK
     Route: 048
     Dates: start: 20060802, end: 20060810
  13. TRAMADOL HYDROCHLORIDE [Concomitant]
     Dosage: UNK
     Route: 048
     Dates: start: 20060810
  14. DIAZEPAM [Concomitant]
     Dosage: UNK
     Route: 048
     Dates: start: 20060810
  15. RABEPRAZOLE SODIUM [Concomitant]
     Dosage: UNK
     Route: 048
     Dates: start: 20060802
  16. SODIUM POLYSTYRENE SULFONATE [Concomitant]
     Dosage: UNK
     Route: 048
     Dates: start: 20060727, end: 20060804
  17. AUGMENTIN '125' [Concomitant]
     Dosage: UNK
     Route: 048
     Dates: start: 20060828
  18. NADROPARINA [Concomitant]
     Dosage: UNK
     Route: 058
     Dates: start: 20060828
  19. RASBURICASE [Concomitant]
     Dosage: UNK
     Route: 042
     Dates: start: 20060830

REACTIONS (2)
  - RASH [None]
  - SKIN EXFOLIATION [None]
